FAERS Safety Report 13804581 (Version 2)
Quarter: 2017Q3

REPORT INFORMATION
  Report Type: Spontaneous
  Country: IT (occurrence: IT)
  Receive Date: 20170728
  Receipt Date: 20170808
  Transmission Date: 20171127
  Serious: Yes (Hospitalization)
  Sender: FDA-Public Use
  Company Number: IT-ROCHE-1966754

PATIENT
  Age: 72 Year
  Sex: Female

DRUGS (7)
  1. NEUPRO [Concomitant]
     Active Substance: ROTIGOTINE
     Dosage: 6 MG/24 H 7 TRANSDERMAL PATCHES IN A SACHET
     Route: 065
  2. CARDICOR [Concomitant]
     Active Substance: BISOPROLOL
     Dosage: 28 X 2.5 MG TABLETS IN A PVC/AL BLISTER PACK
     Route: 065
  3. LEVODOPA/BENSERAZIDE [Concomitant]
     Active Substance: BENSERAZIDE\LEVODOPA
     Dosage: 200 MG / 50 MG ^ 50 TABLETS IN A BOTTLE
     Route: 065
  4. PLAUNAZIDE [Concomitant]
     Active Substance: HYDROCHLOROTHIAZIDE\OLMESARTAN MEDOXOMIL
     Dosage: 20 MG /12.5 MG, 28 TABLETS IN PVC/PVDC/AL BLISTER
     Route: 065
  5. SEREUPIN [Concomitant]
     Active Substance: PAROXETINE HYDROCHLORIDE
     Dosage: 20 MG FILM-COATED TABLETS^ 28 TABLETS
     Route: 065
  6. ANASTROZOLE ACCORD [Concomitant]
     Active Substance: ANASTROZOLE
     Dosage: ^1 MG, 28 TABLETS IN A PVC/PVDC/AL BLISTER PACK
     Route: 065
  7. RIVOTRIL [Suspect]
     Active Substance: CLONAZEPAM
     Indication: EPILEPSY
     Dosage: 2.5 MG/ML ORAL DROPS, SOLUTION^ 10 ML BOTTLE
     Route: 048
     Dates: start: 20170401, end: 20170401

REACTIONS (3)
  - Accidental overdose [Unknown]
  - Sopor [Recovered/Resolved]
  - Ill-defined disorder [Unknown]

NARRATIVE: CASE EVENT DATE: 20170401
